FAERS Safety Report 13836010 (Version 3)
Quarter: 2017Q4

REPORT INFORMATION
  Report Type: Spontaneous
  Country: US (occurrence: US)
  Receive Date: 20170804
  Receipt Date: 20171215
  Transmission Date: 20180320
  Serious: Yes (Other)
  Sender: FDA-Public Use
  Company Number: US-ASTRAZENECA-2017SE77801

PATIENT
  Age: 53 Year
  Sex: Female
  Weight: 88 kg

DRUGS (15)
  1. TAMOXIFEN [Suspect]
     Active Substance: TAMOXIFEN
     Indication: BREAST CANCER
     Dosage: DAILY
     Route: 048
     Dates: start: 201406, end: 2014
  2. VIT. D3 [Concomitant]
  3. CLARITIN [Concomitant]
     Active Substance: LORATADINE
  4. GAVISCON [Concomitant]
     Active Substance: ALUMINUM HYDROXIDE\MAGNESIUM CARBONATE
  5. ANASTROZOLE. [Suspect]
     Active Substance: ANASTROZOLE
     Indication: BREAST CANCER
     Route: 048
     Dates: start: 2014
  6. TAMOXIFEN [Suspect]
     Active Substance: TAMOXIFEN
     Indication: BREAST CANCER
     Dosage: GENERIC DAILY
     Route: 048
     Dates: start: 1993, end: 1998
  7. ZANTAC [Concomitant]
     Active Substance: RANITIDINE HYDROCHLORIDE
  8. FASLODEX [Suspect]
     Active Substance: FULVESTRANT
     Indication: BREAST CANCER
     Route: 030
     Dates: start: 2002, end: 201310
  9. IBRANCE [Suspect]
     Active Substance: PALBOCICLIB
     Indication: BREAST CANCER
     Route: 048
     Dates: start: 2014
  10. VIT B COMPLEX [Concomitant]
  11. FLORAJEN PROBIOTIC [Concomitant]
  12. GLUCOSAMINE [Concomitant]
     Active Substance: GLUCOSAMINE
  13. VIT K 2 [Concomitant]
  14. FASLODEX [Suspect]
     Active Substance: FULVESTRANT
     Indication: BREAST CANCER
     Route: 030
  15. LETROZOLE. [Concomitant]
     Active Substance: LETROZOLE
     Dosage: DAILY
     Route: 048

REACTIONS (13)
  - Carpal tunnel syndrome [Not Recovered/Not Resolved]
  - Drug ineffective [Unknown]
  - Injection site pain [Recovered/Resolved]
  - Joint swelling [Not Recovered/Not Resolved]
  - Underdose [Unknown]
  - Malignant neoplasm progression [Unknown]
  - Body height decreased [Not Recovered/Not Resolved]
  - Nerve injury [Unknown]
  - Breast cancer recurrent [Unknown]
  - Bone disorder [Unknown]
  - Bone pain [Not Recovered/Not Resolved]
  - Metastases to bone [Unknown]
  - Weight increased [Unknown]

NARRATIVE: CASE EVENT DATE: 2000
